FAERS Safety Report 16801400 (Version 2)
Quarter: 2019Q3

REPORT INFORMATION
  Report Type: Spontaneous
  Country: CN (occurrence: CN)
  Receive Date: 20190912
  Receipt Date: 20190920
  Transmission Date: 20191005
  Serious: Yes (Death, Other)
  Sender: FDA-Public Use
  Company Number: CN-ASTRAZENECA-2019SF29613

PATIENT
  Age: 70 Year
  Sex: Female

DRUGS (3)
  1. TAGRISSO [Suspect]
     Active Substance: OSIMERTINIB
     Dosage: UNKNOWN DOSE
     Route: 048
     Dates: start: 201906, end: 20190630
  2. IRESSA [Suspect]
     Active Substance: GEFITINIB
     Dosage: UNKNOWN DOSE
     Route: 048
  3. TAGRISSO [Suspect]
     Active Substance: OSIMERTINIB
     Route: 048
     Dates: start: 20190701

REACTIONS (10)
  - Tachycardia [Unknown]
  - Arrhythmia [Unknown]
  - Vascular compression [Unknown]
  - Abdominal pain upper [Unknown]
  - Peripheral swelling [Unknown]
  - Death [Fatal]
  - Pleural effusion [Unknown]
  - Pain [Unknown]
  - Pericardial effusion [Unknown]
  - Insomnia [Unknown]

NARRATIVE: CASE EVENT DATE: 20190612
